FAERS Safety Report 24095517 (Version 1)
Quarter: 2024Q3

REPORT INFORMATION
  Report Type: Other
  Country: US (occurrence: US)
  Receive Date: 20240716
  Receipt Date: 20240716
  Transmission Date: 20241017
  Serious: Yes (Other)
  Sender: MARKSANS
  Company Number: US-Marksans Pharma Limited-2159146

PATIENT

DRUGS (1)
  1. FLUOXETINE [Suspect]
     Active Substance: FLUOXETINE HYDROCHLORIDE
     Indication: Major depression
     Route: 065

REACTIONS (3)
  - Bipolar I disorder [Unknown]
  - Intentional self-injury [Unknown]
  - Suicidal ideation [Unknown]
